FAERS Safety Report 7198350-1 (Version None)
Quarter: 2010Q4

REPORT INFORMATION
  Report Type: 
  Country: None (occurrence: None)
  Receive Date: 20101227
  Receipt Date: 20101216
  Transmission Date: 20110411
  Serious: Yes (Other)
  Sender: FDA-Public Use
  Company Number: FR-JNJFOC-20101206964

PATIENT
  Age: 66 Year
  Sex: Female
  Weight: 45 kg

DRUGS (1)
  1. DURAGESIC-100 [Suspect]
     Indication: PAIN
     Route: 062

REACTIONS (7)
  - DRUG PRESCRIBING ERROR [None]
  - DRY MOUTH [None]
  - MALAISE [None]
  - MEDICATION ERROR [None]
  - NAUSEA [None]
  - SOMNOLENCE [None]
  - VOMITING [None]
